FAERS Safety Report 5225194-X (Version None)
Quarter: 2007Q1

REPORT INFORMATION
  Report Type: 
  Country: None (occurrence: None)
  Receive Date: 20070131
  Receipt Date: 20070125
  Transmission Date: 20070707
  Serious: Yes (Hospitalization)
  Sender: FDA-Public Use
  Company Number: JP-AVENTIS-200710218JP

PATIENT
  Age: 46 Year
  Sex: Male

DRUGS (7)
  1. AMARYL [Suspect]
     Indication: SUICIDE ATTEMPT
     Route: 048
  2. LORELCO [Concomitant]
     Dosage: DOSE: 1 TABLET
  3. BASEN [Concomitant]
     Dosage: DOSE: 36 TABLETS
  4. AMOXAN [Concomitant]
     Dosage: DOSE: 100 TABLETS
  5. ROHYPNOL [Concomitant]
     Dosage: DOSE: 14 TABLETS
  6. SOLANAX [Concomitant]
     Dosage: DOSE: 12 TABLETS
  7. MEILAX [Concomitant]
     Dosage: DOSE: 14 TABLETS

REACTIONS (1)
  - INTENTIONAL OVERDOSE [None]
